FAERS Safety Report 21038009 (Version 3)
Quarter: 2024Q2

REPORT INFORMATION
  Report Type: Report from Study
  Country: US (occurrence: US)
  Receive Date: 20220704
  Receipt Date: 20240613
  Transmission Date: 20240715
  Serious: Yes (Disabling, Other)
  Sender: FDA-Public Use
  Company Number: US-ABBVIE-22K-163-4386885-00

PATIENT
  Sex: Female

DRUGS (4)
  1. HUMIRA [Suspect]
     Active Substance: ADALIMUMAB
     Indication: Uveitis
     Dosage: CITRATE FREE
     Route: 058
  2. HUMIRA [Suspect]
     Active Substance: ADALIMUMAB
     Indication: Intraocular pressure increased
  3. MODERNA COVID-19 VACCINE [Concomitant]
     Active Substance: ELASOMERAN
     Indication: COVID-19 immunisation
     Dosage: ONE, ONE, ONCE
     Route: 030
  4. DUREZOL [Suspect]
     Active Substance: DIFLUPREDNATE
     Indication: Cataract
     Route: 065

REACTIONS (5)
  - Cataract [Unknown]
  - Blindness [Unknown]
  - Eye disorder [Unknown]
  - Intraocular pressure increased [Unknown]
  - Diabetes mellitus [Unknown]
